FAERS Safety Report 8200307-6 (Version None)
Quarter: 2012Q1

REPORT INFORMATION
  Report Type: 
  Country: None (occurrence: None)
  Receive Date: 20120309
  Receipt Date: 20120309
  Transmission Date: 20120608
  Serious: No
  Sender: FDA-Public Use
  Company Number: None

PATIENT
  Age: 80 Year
  Sex: Male
  Weight: 72.5755 kg

DRUGS (1)
  1. SIMVASTATIN [Suspect]
     Indication: BLOOD CHOLESTEROL INCREASED
     Dosage: 40 MG 1 PILL PER DAY

REACTIONS (4)
  - FATIGUE [None]
  - CONFUSIONAL STATE [None]
  - PAIN IN EXTREMITY [None]
  - HYPERSOMNIA [None]
